FAERS Safety Report 9097974 (Version 4)
Quarter: 2013Q3

REPORT INFORMATION
  Report Type: Report from Study
  Country: US (occurrence: US)
  Receive Date: 20130212
  Receipt Date: 20130926
  Transmission Date: 20140515
  Serious: Yes (Hospitalization)
  Sender: FDA-Public Use
  Company Number: US-PFIZER INC-2013042649

PATIENT
  Age: 64 Year
  Sex: Male
  Weight: 96 kg

DRUGS (14)
  1. TOFACITINIB CITRATE [Suspect]
     Indication: PSORIASIS
     Dosage: 10 MG, 2X/DAY
     Route: 048
     Dates: start: 20120220
  2. WARFARIN [Concomitant]
     Indication: PROPHYLAXIS
     Dosage: ONCE DAILY
     Route: 048
     Dates: start: 1998
  3. MAVIK [Concomitant]
     Indication: HYPERTENSION
     Dosage: TWICE DAILY
     Route: 048
     Dates: start: 2003
  4. METFORMIN [Concomitant]
     Indication: TYPE 2 DIABETES MELLITUS
     Dosage: TID
     Route: 048
     Dates: start: 2005
  5. GLIPIZIDE [Concomitant]
     Indication: TYPE 2 DIABETES MELLITUS
     Dosage: QD
     Route: 048
     Dates: start: 2005
  6. PRILOSEC [Concomitant]
     Indication: GASTROOESOPHAGEAL REFLUX DISEASE
     Dosage: QD
     Route: 048
     Dates: start: 2005
  7. ASPIRIN [Concomitant]
     Indication: PROPHYLAXIS
     Dosage: QD
     Route: 048
     Dates: start: 1998
  8. ZYRTEC [Concomitant]
     Indication: SEASONAL ALLERGY
     Dosage: AS NEEDED
     Route: 048
     Dates: start: 2008
  9. DIGOXIN [Concomitant]
     Indication: HYPERTENSION
     Dosage: QD
     Route: 048
     Dates: start: 20110501
  10. FUROSEMIDE [Concomitant]
     Indication: HYPERTENSION
     Dosage: QD
     Route: 048
     Dates: start: 20110501
  11. KLOR-CON [Concomitant]
     Indication: SUPPLEMENTATION THERAPY
     Dosage: QD
     Route: 048
     Dates: start: 20110501
  12. ATENOLOL [Concomitant]
     Indication: HYPERTENSION
     Dosage: BID
     Route: 048
     Dates: start: 20110501
  13. CRESTOR [Concomitant]
     Indication: HYPERCHOLESTEROLAEMIA
     Dosage: QD
     Route: 048
     Dates: start: 20111007
  14. ALBUTEROL [Concomitant]
     Indication: CHRONIC OBSTRUCTIVE PULMONARY DISEASE
     Dosage: AS NEEDED
     Route: 055
     Dates: start: 2000

REACTIONS (2)
  - Chronic obstructive pulmonary disease [Recovered/Resolved]
  - Bronchitis chronic [Recovered/Resolved]
